FAERS Safety Report 18205296 (Version 1)
Quarter: 2020Q3

REPORT INFORMATION
  Report Type: Spontaneous
  Country: DK (occurrence: DK)
  Receive Date: 20200828
  Receipt Date: 20200828
  Transmission Date: 20201103
  Serious: Yes (Hospitalization)
  Sender: FDA-Public Use
  Company Number: DK-TEVA-2020-DK-1820406

PATIENT
  Age: 90 Year
  Sex: Female

DRUGS (8)
  1. ELTROXIN [Concomitant]
     Active Substance: LEVOTHYROXINE
     Indication: HYPOTHYROIDISM
     Dosage: 50 UG
     Route: 048
  2. AMOXICILLIN. [Concomitant]
     Active Substance: AMOXICILLIN
     Indication: ENDOCARDITIS PROPHYLAXIS
     Dosage: 2000 MG
     Route: 048
     Dates: start: 20200303, end: 20200710
  3. SPIRIX [Suspect]
     Active Substance: SPIRONOLACTONE
     Indication: CARDIAC FAILURE
     Dosage: 25 MG
     Route: 048
     Dates: start: 20200407, end: 20200806
  4. AMLODIPINE [Concomitant]
     Active Substance: AMLODIPINE BESYLATE
     Indication: HYPERTENSION
     Dosage: 5 MG
     Route: 048
     Dates: start: 20151113
  5. FUROSEMIDE. [Concomitant]
     Active Substance: FUROSEMIDE
     Indication: DIURETIC THERAPY
     Dosage: 40 MG
     Route: 048
  6. APIXABAN [Concomitant]
     Active Substance: APIXABAN
     Indication: THROMBOSIS PROPHYLAXIS
     Dosage: 5 MG
     Route: 048
     Dates: start: 20181123
  7. LOSARTAN POTASSIUM. [Suspect]
     Active Substance: LOSARTAN POTASSIUM
     Indication: HYPERTENSION
     Dosage: INCREASED FROM 50 MG DAILY 07?APR?2020, 150 MG
     Route: 048
     Dates: start: 20151113
  8. PANTOPRAZOLE [Concomitant]
     Active Substance: PANTOPRAZOLE
     Indication: GASTROOESOPHAGEAL REFLUX DISEASE
     Dosage: 40 MG
     Route: 048

REACTIONS (3)
  - Nephropathy [Not Recovered/Not Resolved]
  - Fatigue [Not Recovered/Not Resolved]
  - Hyperkalaemia [Unknown]

NARRATIVE: CASE EVENT DATE: 202004
